FAERS Safety Report 11708552 (Version 1)
Quarter: 2015Q4

REPORT INFORMATION
  Report Type: Spontaneous
  Country: US (occurrence: US)
  Receive Date: 20151104
  Receipt Date: 20151104
  Transmission Date: 20160304
  Serious: No
  Sender: FDA-Public Use
  Company Number: US-ELI_LILLY_AND_COMPANY-US201103002350

PATIENT
  Age: 58 Year
  Sex: Female

DRUGS (4)
  1. ACTONEL [Concomitant]
     Active Substance: RISEDRONATE SODIUM
     Indication: OSTEOPOROSIS
     Dosage: 1 D/F, MONTHLY (1/M)
  2. FORTEO [Suspect]
     Active Substance: TERIPARATIDE
     Indication: OSTEOPOROSIS
     Dosage: 20 UG, DAILY (1/D)
     Dates: start: 200902, end: 201102
  3. VITAMINS [Concomitant]
     Active Substance: VITAMINS
     Dosage: UNK, DAILY (1/D)
  4. CALTRATE [Concomitant]
     Active Substance: CALCIUM CARBONATE
     Dosage: UNK, DAILY (1/D)

REACTIONS (3)
  - Intentional product misuse [Recovered/Resolved]
  - Vitamin D decreased [Unknown]
  - Bone density decreased [Unknown]

NARRATIVE: CASE EVENT DATE: 200902
